FAERS Safety Report 6062008-2 (Version None)
Quarter: 2009Q1

REPORT INFORMATION
  Report Type: 
  Country: None (occurrence: None)
  Receive Date: 20090202
  Receipt Date: 20090115
  Transmission Date: 20090719
  Serious: Yes (Hospitalization, Other)
  Sender: FDA-Public Use
  Company Number: US-B.I. PHARMACEUTICALS,INC./RIDGEFIELD-2008-BP-17538BP

PATIENT
  Sex: Male

DRUGS (7)
  1. FLOMAX [Suspect]
     Indication: PROSTATOMEGALY
  2. LEXAPRO [Concomitant]
  3. PROSCAR [Concomitant]
  4. NORVASC [Concomitant]
  5. CADEVIT [Concomitant]
  6. ISOSORBID [Concomitant]
  7. ASPIRIN [Concomitant]

REACTIONS (2)
  - ORTHOSTATIC HYPOTENSION [None]
  - SYNCOPE [None]
